FAERS Safety Report 9349648 (Version 2)
Quarter: 2013Q3

REPORT INFORMATION
  Report Type: Spontaneous
  Country: DE (occurrence: DE)
  Receive Date: 20130614
  Receipt Date: 20130723
  Transmission Date: 20140515
  Serious: Yes (Hospitalization)
  Sender: FDA-Public Use
  Company Number: DE-ROCHE-1237029

PATIENT
  Age: 69 Year
  Sex: Female
  Weight: 76 kg

DRUGS (5)
  1. TOCILIZUMAB [Suspect]
     Indication: RHEUMATOID ARTHRITIS
     Route: 042
     Dates: start: 201201
  2. PREDNISOLONE [Concomitant]
     Route: 065
  3. CHOLECALCIFEROL [Concomitant]
     Route: 065
  4. HYDROCHLOROTHIAZIDE [Concomitant]
     Route: 065
  5. MACROGOL [Concomitant]
     Route: 065

REACTIONS (13)
  - Respiratory tract infection [Unknown]
  - General physical health deterioration [Unknown]
  - Anxiety [Not Recovered/Not Resolved]
  - Tension headache [Not Recovered/Not Resolved]
  - Malaise [Unknown]
  - Fatigue [Unknown]
  - Asthenia [Unknown]
  - Alopecia [Unknown]
  - Feeling cold [Unknown]
  - Rhinorrhoea [Unknown]
  - Oropharyngeal pain [Unknown]
  - Cough [Unknown]
  - Dyspnoea exertional [Unknown]
